FAERS Safety Report 6638596-1 (Version None)
Quarter: 2010Q1

REPORT INFORMATION
  Report Type: 
  Country: None (occurrence: None)
  Receive Date: 20100301
  Receipt Date: 20090713
  Transmission Date: 20100710
  Serious: Yes (Hospitalization)
  Sender: FDA-Public Use
  Company Number: RB-17934-2009

PATIENT
  Age: 48 Year
  Sex: Female

DRUGS (1)
  1. SUBOXONE [Suspect]
     Indication: PAIN
     Dosage: 0.5 MG QID SUBLINGUAL
     Route: 060
     Dates: start: 20090626, end: 20090701

REACTIONS (3)
  - HYPOTENSION [None]
  - MALAISE [None]
  - PYREXIA [None]
